FAERS Safety Report 12579412 (Version 4)
Quarter: 2016Q3

REPORT INFORMATION
  Report Type: Spontaneous
  Country: US (occurrence: US)
  Receive Date: 20160721
  Receipt Date: 20160830
  Transmission Date: 20161109
  Serious: Yes (Death, Hospitalization, Other)
  Sender: FDA-Public Use
  Company Number: US-GLAXOSMITHKLINE-US2016099028

PATIENT
  Sex: Female
  Weight: 49.89 kg

DRUGS (7)
  1. VENTOLIN HFA [Suspect]
     Active Substance: ALBUTEROL SULFATE
     Indication: CHRONIC OBSTRUCTIVE PULMONARY DISEASE
  2. VASCEPA [Concomitant]
     Active Substance: ICOSAPENT ETHYL
  3. AMITIZA [Concomitant]
     Active Substance: LUBIPROSTONE
  4. PLAVIX [Concomitant]
     Active Substance: CLOPIDOGREL BISULFATE
  5. LOPRESSOR [Concomitant]
     Active Substance: METOPROLOL TARTRATE
  6. VENTOLIN HFA [Suspect]
     Active Substance: ALBUTEROL SULFATE
     Indication: ASTHMA
     Dosage: 2 PUFF(S), QID
     Route: 055
     Dates: start: 201306
  7. IMDUR [Concomitant]
     Active Substance: ISOSORBIDE MONONITRATE

REACTIONS (5)
  - Device use error [Recovered/Resolved]
  - Anxiety [Recovered/Resolved]
  - Death [Fatal]
  - Dyspnoea [Unknown]
  - Product quality issue [Unknown]
